FAERS Safety Report 24319542 (Version 1)
Quarter: 2024Q3

REPORT INFORMATION
  Report Type: Spontaneous
  Country: US (occurrence: US)
  Receive Date: 20240914
  Receipt Date: 20240914
  Transmission Date: 20241017
  Serious: No
  Sender: SANOFI AVENTIS
  Company Number: US-SA-2024SA263469

PATIENT
  Age: 33 Year
  Sex: Female
  Weight: 96.145 kg

DRUGS (8)
  1. DUPIXENT [Suspect]
     Active Substance: DUPILUMAB
     Indication: Asthma
     Dosage: 300 MG, QOW
     Route: 058
  2. VITAMIN D [Concomitant]
     Active Substance: VITAMIN D NOS
  3. VITAMIN C [Concomitant]
     Active Substance: ASCORBIC ACID
  4. VITAMINS [Concomitant]
     Active Substance: VITAMINS
  5. ALBUTEROL SULFATE [Concomitant]
     Active Substance: ALBUTEROL SULFATE
  6. ALBUTEROL SULFATE [Concomitant]
     Active Substance: ALBUTEROL SULFATE
  7. AMLODIPINE BESYLATE [Concomitant]
     Active Substance: AMLODIPINE BESYLATE
  8. ADVAIR HFA [Concomitant]
     Active Substance: FLUTICASONE PROPIONATE\SALMETEROL XINAFOATE

REACTIONS (2)
  - Asthma [Unknown]
  - Dyspnoea [Unknown]

NARRATIVE: CASE EVENT DATE: 20240101
